FAERS Safety Report 19235491 (Version 2)
Quarter: 2021Q2

REPORT INFORMATION
  Report Type: Spontaneous
  Country: PL (occurrence: PL)
  Receive Date: 20210510
  Receipt Date: 20210520
  Transmission Date: 20210717
  Serious: Yes (Hospitalization)
  Sender: FDA-Public Use
  Company Number: PL-LUPIN PHARMACEUTICALS INC.-2021-05731

PATIENT
  Age: 2 Year
  Sex: Male

DRUGS (4)
  1. HYDROCORTISONE. [Suspect]
     Active Substance: HYDROCORTISONE
     Indication: HYPERVITAMINOSIS
     Dosage: UNK DOSE REDUCTION
     Route: 042
  2. FUROSEMIDE. [Suspect]
     Active Substance: FUROSEMIDE
     Indication: DIURETIC THERAPY
     Dosage: 2 MILLIGRAM/KILOGRAM, QD RECEIVED 1 MG/KG BODY WEIGHT/DAY
     Route: 042
  3. HYDROCORTISONE. [Suspect]
     Active Substance: HYDROCORTISONE
     Indication: DIURETIC THERAPY
     Dosage: 7.5 MILLIGRAM/KILOGRAM, QD (RECEIVED 7.5 MG/KG BODY WEIGHT/DAY IN 4 DOSES FOR 5)
     Route: 042
  4. FUROSEMIDE. [Suspect]
     Active Substance: FUROSEMIDE
     Indication: HYPERVITAMINOSIS
     Dosage: 1 MILLIGRAM/KILOGRAM, QD (RECEIVED 1 MG/KG BODY WEIGHT/DAY)
     Route: 042

REACTIONS (1)
  - Drug ineffective [Unknown]
